FAERS Safety Report 21483979 (Version 1)
Quarter: 2022Q4

REPORT INFORMATION
  Report Type: Spontaneous
  Country: FR (occurrence: FR)
  Receive Date: 20221020
  Receipt Date: 20221020
  Transmission Date: 20230113
  Serious: Yes (Hospitalization, Other)
  Sender: FDA-Public Use
  Company Number: None

PATIENT
  Age: 47 Year
  Sex: Female

DRUGS (5)
  1. ZOLPIDEM TARTRATE [Suspect]
     Active Substance: ZOLPIDEM TARTRATE
     Indication: Toxicity to various agents
     Dosage: 40 MG, QD
     Route: 048
     Dates: start: 20220702, end: 20220702
  2. ACETAMINOPHEN\CODEINE PHOSPHATE [Suspect]
     Active Substance: ACETAMINOPHEN\CODEINE PHOSPHATE
     Indication: Toxicity to various agents
     Dosage: 60 DF , QD
     Route: 048
     Dates: start: 20220702, end: 20220702
  3. OROCAL VITAMINE D3 [CALCIUM CARBONATE;COLECALCIFEROL] [Concomitant]
  4. LEVOTHYROXINE [Concomitant]
     Active Substance: LEVOTHYROXINE
  5. LOXAPINE [Concomitant]
     Active Substance: LOXAPINE
     Dosage: UNK

REACTIONS (5)
  - Acute kidney injury [Recovered/Resolved]
  - Alanine aminotransferase increased [Recovered/Resolved]
  - Aspartate aminotransferase increased [Recovered/Resolved]
  - Psychomotor skills impaired [Recovered/Resolved]
  - Intentional overdose [Unknown]
